FAERS Safety Report 7641072-0 (Version None)
Quarter: 2011Q3

REPORT INFORMATION
  Report Type: 
  Country: None (occurrence: None)
  Receive Date: 20110728
  Receipt Date: 20110722
  Transmission Date: 20111222
  Serious: Yes (Death, Other)
  Sender: FDA-Public Use
  Company Number: DK-ROXANE LABORATORIES, INC.-2011-RO-01042RO

PATIENT
  Age: 77 Year
  Sex: Female

DRUGS (3)
  1. FLUCONAZOLE [Suspect]
  2. AMLODIPINE [Suspect]
     Indication: HYPERTENSION
  3. VENLAFAXINE [Suspect]
     Indication: DEPRESSION

REACTIONS (2)
  - DRUG LEVEL INCREASED [None]
  - ASPHYXIA [None]
